FAERS Safety Report 17076142 (Version 1)
Quarter: 2019Q4

REPORT INFORMATION
  Report Type: Report from Study
  Country: None (occurrence: US)
  Receive Date: 20191126
  Receipt Date: 20191126
  Transmission Date: 20200122
  Serious: Yes (Death)
  Sender: FDA-Public Use
  Company Number: US-ABBVIE-19K-163-3170154-00

PATIENT
  Sex: Female
  Weight: 63.56 kg

DRUGS (1)
  1. CREON [Suspect]
     Active Substance: PANCRELIPASE AMYLASE\PANCRELIPASE LIPASE\PANCRELIPASE PROTEASE
     Indication: PANCREATIC CARCINOMA
     Dosage: 8 TABLETS PER DAY
     Route: 048
     Dates: start: 20190225, end: 201905

REACTIONS (1)
  - Vascular neoplasm [Fatal]

NARRATIVE: CASE EVENT DATE: 2019
